FAERS Safety Report 16286412 (Version 1)
Quarter: 2019Q2

REPORT INFORMATION
  Report Type: Spontaneous
  Country: US (occurrence: US)
  Receive Date: 20190507
  Receipt Date: 20190507
  Transmission Date: 20190711
  Serious: Yes (Death, Life-Threatening)
  Sender: FDA-Public Use
  Company Number: None

PATIENT
  Age: 84 Year
  Sex: Female
  Weight: 64.9 kg

DRUGS (16)
  1. POTASSIUM CHLORIDE 10 MEQ PO DAILY [Concomitant]
     Dates: start: 20190418, end: 20190421
  2. PANTOPRAZOLE 40 MG IVP Q12H [Concomitant]
     Dates: start: 20190417, end: 20190418
  3. CARVEDILOL 6.25 MG PO BID [Concomitant]
     Dates: start: 20190417, end: 20190418
  4. AMLODIPINE 5 MG PO DAILY [Concomitant]
     Dates: start: 20190418, end: 20190421
  5. SERTRALINE 50 MG DAILY [Concomitant]
     Dates: start: 20190418, end: 20190421
  6. LORATADINE 10 MG PO DAILY [Concomitant]
     Dates: start: 20190418, end: 20190418
  7. FLUTICASONE 50 MCG/INH NASAL SPRAY 1 SPRAY BID [Concomitant]
     Dates: start: 20190417, end: 20190421
  8. FUROSEMIDE 20 MG PO DAILY [Concomitant]
     Dates: start: 20190418, end: 20190418
  9. LORAZEPAM 0.5 MG PO BID [Concomitant]
     Dates: start: 20190417, end: 20190421
  10. SYMBICORT 160-4.5 MCG/INH 2 PUFFS BID [Concomitant]
     Dates: start: 20190417, end: 20190421
  11. MAGNESIUM OXIDE 400 MG PO DAILY [Concomitant]
     Dates: start: 20190418, end: 20190421
  12. FERRLECIT [Suspect]
     Active Substance: SODIUM FERRIC GLUCONATE COMPLEX
     Indication: IRON DEFICIENCY ANAEMIA
     Dosage: ?          OTHER FREQUENCY:ONCE;?
     Route: 042
     Dates: start: 20190418, end: 20190418
  13. CYANOCOBALAMIN (VIT B12) 1000 MCG PO DAILY [Concomitant]
     Dates: start: 20190418, end: 20190421
  14. ATORVASTATIN 40 MG PO QHS [Concomitant]
     Dates: start: 20190417, end: 20190421
  15. AMIODARONE 200 MG PO DAILY [Concomitant]
     Dates: start: 20190418, end: 20190421
  16. FERROUS SULFATE 325 MG PO DAILY [Concomitant]
     Dates: start: 20190418, end: 20190418

REACTIONS (17)
  - Infusion related reaction [None]
  - Cholecystitis [None]
  - Hypotension [None]
  - Colitis [None]
  - Aortic valve stenosis [None]
  - Gastritis [None]
  - Cerebral infarction [None]
  - Emphysema [None]
  - Aortic valve calcification [None]
  - Infection [None]
  - Unresponsive to stimuli [None]
  - Cholelithiasis [None]
  - Goitre [None]
  - Seizure [None]
  - Atelectasis [None]
  - Inflammation [None]
  - Ischaemia [None]

NARRATIVE: CASE EVENT DATE: 20190418
